FAERS Safety Report 9324831 (Version 2)
Quarter: 2013Q3

REPORT INFORMATION
  Report Type: Spontaneous
  Country: US (occurrence: US)
  Receive Date: 20130603
  Receipt Date: 20130814
  Transmission Date: 20140515
  Serious: Yes (Hospitalization)
  Sender: FDA-Public Use
  Company Number: US-B.I. PHARMACEUTICALS,INC./RIDGEFIELD-2013-BI-15446BP

PATIENT
  Sex: Male
  Weight: 91.17 kg

DRUGS (9)
  1. PRADAXA [Suspect]
     Indication: ANTICOAGULANT THERAPY
     Dosage: 300 MG
     Dates: start: 20120413, end: 20120417
  2. COREG [Concomitant]
     Dosage: 6.25 MG
     Route: 048
  3. ASPIRIN [Concomitant]
     Dosage: 81 MG
     Route: 048
  4. VYTORIN [Concomitant]
     Route: 048
  5. LISINOPRIL [Concomitant]
     Dosage: 20 MG
     Route: 048
  6. COMBIVENT [Concomitant]
     Dosage: 4 PUF
  7. NORVASC [Concomitant]
     Dosage: 5 MG
     Route: 048
  8. OMEGA 3 FATTY ACIDS [Concomitant]
  9. LASIX [Concomitant]
     Dosage: 20 MG
     Route: 048

REACTIONS (2)
  - Gastrointestinal haemorrhage [Recovered/Resolved]
  - Coagulopathy [Recovered/Resolved]
